FAERS Safety Report 6849001-4 (Version None)
Quarter: 2010Q3

REPORT INFORMATION
  Report Type: 
  Country: None (occurrence: None)
  Receive Date: 20100716
  Receipt Date: 20100712
  Transmission Date: 20110219
  Serious: Yes (Death)
  Sender: FDA-Public Use
  Company Number: TH-ABBOTT-10P-155-0656403-00

PATIENT
  Sex: Male
  Weight: 66 kg

DRUGS (2)
  1. RITONAVIR [Suspect]
     Indication: HIV INFECTION
     Route: 048
     Dates: start: 20060503, end: 20100623
  2. DARUNAVIR [Concomitant]
     Indication: HIV INFECTION
     Route: 048
     Dates: start: 20060503, end: 20100628

REACTIONS (1)
  - DEATH [None]
